FAERS Safety Report 24047248 (Version 1)
Quarter: 2024Q3

REPORT INFORMATION
  Report Type: Spontaneous
  Country: CA (occurrence: CA)
  Receive Date: 20240703
  Receipt Date: 20240703
  Transmission Date: 20241016
  Serious: Yes (Other)
  Sender: TEVA
  Company Number: CA-TEVA-VS-3213140

PATIENT
  Age: 57 Year
  Sex: Female

DRUGS (9)
  1. BUDESONIDE [Suspect]
     Active Substance: BUDESONIDE
     Indication: Product used for unknown indication
     Route: 065
  2. BREO ELLIPTA [Suspect]
     Active Substance: FLUTICASONE FUROATE\VILANTEROL TRIFENATATE
     Indication: Product used for unknown indication
     Dosage: DOSAGE FORM: INHALATION
     Route: 065
  3. PULMICORT TURBUHALER [Suspect]
     Active Substance: BUDESONIDE
     Indication: Product used for unknown indication
     Route: 065
  4. PULMICORT TURBUHALER [Suspect]
     Active Substance: BUDESONIDE
     Indication: Product used for unknown indication
     Route: 065
  5. MONTELUKAST [Suspect]
     Active Substance: MONTELUKAST SODIUM
     Indication: Product used for unknown indication
     Route: 065
  6. SINGULAIR [Suspect]
     Active Substance: MONTELUKAST SODIUM
     Indication: Product used for unknown indication
     Route: 065
  7. SPIRIVA [Suspect]
     Active Substance: TIOTROPIUM BROMIDE MONOHYDRATE
     Indication: Product used for unknown indication
     Route: 065
  8. ALBUTEROL [Suspect]
     Active Substance: ALBUTEROL
     Indication: Product used for unknown indication
     Route: 065
  9. CETIRIZINE HYDROCHLORIDE [Concomitant]
     Active Substance: CETIRIZINE HYDROCHLORIDE
     Indication: Product used for unknown indication
     Route: 065

REACTIONS (10)
  - Ageusia [Recovering/Resolving]
  - Hypertension [Recovering/Resolving]
  - Malaise [Recovering/Resolving]
  - Pneumonia [Recovering/Resolving]
  - Productive cough [Recovering/Resolving]
  - Blood pressure increased [Recovering/Resolving]
  - Anosmia [Recovering/Resolving]
  - Asthma [Recovering/Resolving]
  - Fatigue [Recovering/Resolving]
  - Oxygen saturation decreased [Recovering/Resolving]
